FAERS Safety Report 5622240-6 (Version None)
Quarter: 2008Q1

REPORT INFORMATION
  Report Type: 
  Country: None (occurrence: None)
  Receive Date: 20080206
  Receipt Date: 20080124
  Transmission Date: 20080703
  Serious: Yes (Hospitalization)
  Sender: FDA-Public Use
  Company Number: DSA_31337_2008

PATIENT
  Age: 87 Year
  Sex: Female

DRUGS (9)
  1. DILTIAZEM [Suspect]
     Indication: DRUG USE FOR UNKNOWN INDICATION
     Dosage: (300 MG ORAL), (300 MG BID ORAL), (DF (DURING HOSPITALIZATION)), (30 MG BID ORAL), (60 MG TID ORAL)
     Route: 048
     Dates: end: 20071201
  2. DILTIAZEM [Suspect]
     Indication: DRUG USE FOR UNKNOWN INDICATION
     Dosage: (300 MG ORAL), (300 MG BID ORAL), (DF (DURING HOSPITALIZATION)), (30 MG BID ORAL), (60 MG TID ORAL)
     Route: 048
     Dates: start: 20071201, end: 20080101
  3. DILTIAZEM [Suspect]
     Indication: DRUG USE FOR UNKNOWN INDICATION
     Dosage: (300 MG ORAL), (300 MG BID ORAL), (DF (DURING HOSPITALIZATION)), (30 MG BID ORAL), (60 MG TID ORAL)
     Route: 048
     Dates: start: 20080101, end: 20080101
  4. DILTIAZEM [Suspect]
     Indication: DRUG USE FOR UNKNOWN INDICATION
     Dosage: (300 MG ORAL), (300 MG BID ORAL), (DF (DURING HOSPITALIZATION)), (30 MG BID ORAL), (60 MG TID ORAL)
     Route: 048
     Dates: start: 20080102
  5. DILTIAZEM [Suspect]
     Indication: DRUG USE FOR UNKNOWN INDICATION
     Dosage: (300 MG ORAL), (300 MG BID ORAL), (DF (DURING HOSPITALIZATION)), (30 MG BID ORAL), (60 MG TID ORAL)
     Route: 048
     Dates: start: 20080110
  6. RABEPRAZOLE SODIUM [Concomitant]
  7. GLIMEPIRIDE [Concomitant]
  8. CLOPIDOGREL [Concomitant]
  9. FUROSEMIDE [Concomitant]

REACTIONS (4)
  - BRADYCARDIA [None]
  - HYPOTONIA [None]
  - INCORRECT DOSE ADMINISTERED [None]
  - OVERDOSE [None]
